FAERS Safety Report 25892716 (Version 1)
Quarter: 2025Q4

REPORT INFORMATION
  Report Type: Report from Study
  Country: US (occurrence: US)
  Receive Date: 20251007
  Receipt Date: 20251007
  Transmission Date: 20260119
  Serious: Yes (Death)
  Sender: UCB
  Company Number: US-UCBSA-2025055248

PATIENT
  Sex: Female

DRUGS (1)
  1. BRIVARACETAM [Suspect]
     Active Substance: BRIVARACETAM
     Indication: Seizure
     Dosage: 100 MILLIGRAM
     Dates: start: 2024, end: 20250829

REACTIONS (1)
  - Respiratory failure [Fatal]
